FAERS Safety Report 11086449 (Version 1)
Quarter: 2015Q2

REPORT INFORMATION
  Report Type: Spontaneous
  Country: US (occurrence: None)
  Receive Date: 20150501
  Receipt Date: 20150501
  Transmission Date: 20150821
  Serious: Yes (Death)
  Sender: FDA-Public Use
  Company Number: None

PATIENT
  Age: 80 Year
  Sex: Male
  Weight: 75.3 kg

DRUGS (4)
  1. CLOPIDOGREL [Suspect]
     Active Substance: CLOPIDOGREL BISULFATE
     Indication: PATIENT-DEVICE INCOMPATIBILITY
     Route: 048
  2. WARFARIN [Suspect]
     Active Substance: WARFARIN
     Indication: MITRAL VALVE REPAIR
     Route: 048
  3. CLOPIDOGREL [Suspect]
     Active Substance: CLOPIDOGREL BISULFATE
     Indication: MITRAL VALVE REPAIR
     Route: 048
  4. WARFARIN [Suspect]
     Active Substance: WARFARIN
     Indication: PATIENT-DEVICE INCOMPATIBILITY
     Route: 048

REACTIONS (6)
  - Vomiting [None]
  - Craniotomy [None]
  - Fall [None]
  - Headache [None]
  - Nausea [None]
  - Unresponsive to stimuli [None]

NARRATIVE: CASE EVENT DATE: 20141123
